FAERS Safety Report 13813699 (Version 2)
Quarter: 2017Q4

REPORT INFORMATION
  Report Type: Report from Study
  Country: US (occurrence: US)
  Receive Date: 20170731
  Receipt Date: 20171006
  Transmission Date: 20180320
  Serious: Yes (Death, Other)
  Sender: FDA-Public Use
  Company Number: US-BRISTOL-MYERS SQUIBB COMPANY-BMS-2017-067964

PATIENT
  Age: 48 Year
  Sex: Female
  Weight: 63 kg

DRUGS (2)
  1. NIVOLUMAB [Suspect]
     Active Substance: NIVOLUMAB
     Indication: RECTAL ADENOCARCINOMA
     Dosage: 3 MG/KG, DAYS 1 AND 15
     Route: 042
     Dates: start: 20170111, end: 20170515
  2. ENTINOSTAT [Suspect]
     Active Substance: ENTINOSTAT
     Indication: RECTAL ADENOCARCINOMA
     Dosage: 5 MG, ON DAYS 1, 8, 15, AND 22
     Route: 048
     Dates: start: 20170111, end: 20170522

REACTIONS (1)
  - Death [Fatal]

NARRATIVE: CASE EVENT DATE: 20170717
